FAERS Safety Report 6531053-2 (Version None)
Quarter: 2010Q1

REPORT INFORMATION
  Report Type: 
  Country: None (occurrence: None)
  Receive Date: 20100108
  Receipt Date: 20091027
  Transmission Date: 20100710
  Serious: No
  Sender: FDA-Public Use
  Company Number: A0813606A

PATIENT
  Age: 77 Year
  Sex: Female

DRUGS (6)
  1. LOVAZA [Suspect]
     Dosage: 1G TWICE PER DAY
     Route: 048
     Dates: start: 20090922, end: 20091022
  2. SYNTHROID [Concomitant]
  3. DIOVAN [Concomitant]
  4. METOPROLOL TARTRATE [Concomitant]
  5. CRESTOR [Concomitant]
  6. ZETIA [Concomitant]

REACTIONS (1)
  - DRUG ADMINISTRATION ERROR [None]
